FAERS Safety Report 8494155-X (Version None)
Quarter: 2012Q3

REPORT INFORMATION
  Report Type: 
  Country: None (occurrence: None)
  Receive Date: 20120709
  Receipt Date: 20120702
  Transmission Date: 20120928
  Serious: Yes (Other)
  Sender: FDA-Public Use
  Company Number: PHHY2012AU053632

PATIENT
  Sex: Male

DRUGS (3)
  1. CLOZARIL [Suspect]
     Dosage: 300 MG, NOCTE
     Route: 048
     Dates: start: 20100618
  2. PROPRANOLOL [Concomitant]
     Indication: TREMOR
     Dosage: 20 MG, QD
  3. FLUOXETINE [Concomitant]
     Dosage: 20 MG, QD

REACTIONS (7)
  - ALANINE AMINOTRANSFERASE INCREASED [None]
  - TROPONIN INCREASED [None]
  - BUNDLE BRANCH BLOCK RIGHT [None]
  - ANTIPSYCHOTIC DRUG LEVEL INCREASED [None]
  - GAMMA-GLUTAMYLTRANSFERASE INCREASED [None]
  - HEART VALVE INCOMPETENCE [None]
  - QRS AXIS ABNORMAL [None]
